FAERS Safety Report 26019512 (Version 3)
Quarter: 2025Q4

REPORT INFORMATION
  Report Type: Spontaneous
  Country: US (occurrence: US)
  Receive Date: 20251110
  Receipt Date: 20251222
  Transmission Date: 20260117
  Serious: No
  Sender: ABBVIE
  Company Number: US-ABBVIE-6539790

PATIENT

DRUGS (1)
  1. FML [Suspect]
     Active Substance: FLUOROMETHOLONE
     Indication: Corneal transplant
     Dosage: FORM STRENGTH: 0.1% 10 ML, DOSAGE FORM: SUSPENSION/DROPS
     Dates: start: 2015

REACTIONS (1)
  - No adverse event [Unknown]
